FAERS Safety Report 4472409-1 (Version None)
Quarter: 2004Q4

REPORT INFORMATION
  Report Type: 
  Country: None (occurrence: None)
  Receive Date: 20041007
  Receipt Date: 20040927
  Transmission Date: 20050328
  Serious: Yes (Other)
  Sender: FDA-Public Use
  Company Number: 2004UW20369

PATIENT
  Sex: Female

DRUGS (5)
  1. SEROQUEL [Suspect]
     Dosage: 275 MG QD PO
     Route: 048
  2. LAMICTAL [Concomitant]
  3. VERAPAMIL [Concomitant]
  4. PROVIGIL [Concomitant]
  5. RANITIDINE [Concomitant]

REACTIONS (2)
  - CONTUSION [None]
  - PLATELET FUNCTION TEST ABNORMAL [None]
